FAERS Safety Report 6914624-0 (Version None)
Quarter: 2010Q3

REPORT INFORMATION
  Report Type: 
  Country: None (occurrence: None)
  Receive Date: 20100805
  Receipt Date: 20100805
  Transmission Date: 20110219
  Serious: Yes (Life-Threatening, Hospitalization)
  Sender: FDA-Public Use
  Company Number: None

PATIENT
  Age: 59 Year
  Sex: Male

DRUGS (1)
  1. PREDNISONE [Suspect]
     Indication: PAIN
     Dosage: 1 TAB EVERY DAY PO
     Route: 048
     Dates: start: 20100304, end: 20100324

REACTIONS (2)
  - DEPRESSION [None]
  - SUICIDAL IDEATION [None]
